FAERS Safety Report 23773458 (Version 1)
Quarter: 2024Q2

REPORT INFORMATION
  Report Type: Spontaneous
  Country: DE (occurrence: DE)
  Receive Date: 20240423
  Receipt Date: 20240423
  Transmission Date: 20240715
  Serious: Yes (Other)
  Sender: FDA-Public Use
  Company Number: None

PATIENT
  Age: 52 Year
  Sex: Female

DRUGS (4)
  1. MYCOPHENOLATE MOFETIL [Suspect]
     Active Substance: MYCOPHENOLATE MOFETIL
     Indication: Pemphigus
     Dosage: HIGH-DOSE CORTICOSTEROID
     Route: 065
  2. PREDNISOLONE [Suspect]
     Active Substance: PREDNISOLONE
     Dosage: 2 MG/KG BODY WEIGHT
     Route: 065
  3. PREDNISOLONE [Suspect]
     Active Substance: PREDNISOLONE
     Indication: Pemphigus
     Dosage: 200.000MG QD
     Route: 065
  4. PREDNISOLONE [Suspect]
     Active Substance: PREDNISOLONE
     Dosage: 80.000MG QD
     Route: 065

REACTIONS (5)
  - Pemphigus [Recovering/Resolving]
  - Varicella zoster virus infection [Recovering/Resolving]
  - Herpes simplex [Recovering/Resolving]
  - Atypical pneumonia [Recovering/Resolving]
  - Cytomegalovirus infection [Recovering/Resolving]
